FAERS Safety Report 9967166 (Version 1)
Quarter: 2014Q1

REPORT INFORMATION
  Report Type: Report from Study
  Country: US (occurrence: US)
  Receive Date: 20140305
  Receipt Date: 20140305
  Transmission Date: 20141002
  Serious: No
  Sender: FDA-Public Use
  Company Number: US-ABBVIE-13P-163-1139371-00

PATIENT
  Age: 55 Year
  Sex: Male

DRUGS (12)
  1. HUMIRA [Suspect]
     Indication: PSORIASIS
     Dosage: LOADING DOSE
     Dates: start: 20130824, end: 20130824
  2. HUMIRA [Suspect]
     Dates: start: 20130831, end: 20130831
  3. HUMIRA [Suspect]
  4. PROZAC [Concomitant]
     Indication: OBSESSIVE-COMPULSIVE DISORDER
  5. HYDROXYZINE [Concomitant]
     Indication: PRURITUS
  6. HYDROXYZINE [Concomitant]
     Indication: PSORIASIS
  7. DIAZEPAM [Concomitant]
     Indication: ANXIETY
     Dosage: 10MG IN AM DAILY AND 1/2 TABLET IN AFTERNOON
  8. NARCO [Concomitant]
     Indication: PAIN
     Dosage: 10/325MG
  9. NARCO [Concomitant]
     Indication: PSORIASIS
  10. PREDNISONE [Concomitant]
     Dates: start: 20130812, end: 20130822
  11. PREDNISONE [Concomitant]
     Dates: start: 201308, end: 201308
  12. PREDNISONE [Concomitant]
     Dates: start: 20130825, end: 201309

REACTIONS (2)
  - Psoriasis [Not Recovered/Not Resolved]
  - Rash erythematous [Recovering/Resolving]
